FAERS Safety Report 8467457-0 (Version None)
Quarter: 2012Q2

REPORT INFORMATION
  Report Type: 
  Country: None (occurrence: None)
  Receive Date: 20120626
  Receipt Date: 20120412
  Transmission Date: 20120825
  Serious: No
  Sender: FDA-Public Use
  Company Number: US-ASTRAZENECA-2012SE24041

PATIENT
  Sex: Female

DRUGS (1)
  1. CAPRELSA [Suspect]
     Indication: THYROID CANCER
     Route: 048

REACTIONS (3)
  - WEIGHT INCREASED [None]
  - FATIGUE [None]
  - PHOTOSENSITIVITY REACTION [None]
